FAERS Safety Report 10044623 (Version 1)
Quarter: 2014Q1

REPORT INFORMATION
  Report Type: Report from Study
  Country: US (occurrence: US)
  Receive Date: 20140328
  Receipt Date: 20140328
  Transmission Date: 20141002
  Serious: Yes (Hospitalization)
  Sender: FDA-Public Use
  Company Number: US-ABBVIE-14P-163-1214746-00

PATIENT
  Age: 43 Year
  Sex: Female
  Weight: 70.37 kg

DRUGS (9)
  1. HUMIRA [Suspect]
     Indication: PSORIATIC ARTHROPATHY
     Dates: end: 201401
  2. HUMIRA [Suspect]
     Dates: start: 20140314
  3. NOVOLOG [Concomitant]
     Indication: TYPE 2 DIABETES MELLITUS
  4. LANTUS [Concomitant]
     Indication: TYPE 2 DIABETES MELLITUS
  5. LEFLUNOMIDE [Concomitant]
     Indication: PSORIATIC ARTHROPATHY
  6. ALPRAZOLAM [Concomitant]
     Indication: ANXIETY
  7. EXFORGE HCT [Concomitant]
     Indication: HYPERTENSION
  8. VITAMIN D NOS [Concomitant]
     Indication: PRODUCT USED FOR UNKNOWN INDICATION
  9. FOLIC ACID [Concomitant]
     Indication: PRODUCT USED FOR UNKNOWN INDICATION

REACTIONS (14)
  - Cough [Recovered/Resolved]
  - Back pain [Recovered/Resolved]
  - Weight decreased [Recovered/Resolved]
  - Nausea [Recovered/Resolved]
  - Dyspnoea [Recovered/Resolved]
  - Lung infection [Recovered/Resolved]
  - Pancreatitis [Recovered/Resolved]
  - Blood glucose increased [Recovered/Resolved]
  - Diabetic ketoacidosis [Recovered/Resolved]
  - Pancreatic enzymes increased [Recovered/Resolved]
  - Pancreatic enlargement [Recovered/Resolved]
  - Blood triglycerides increased [Unknown]
  - Hypertension [Not Recovered/Not Resolved]
  - Hyperchlorhydria [Not Recovered/Not Resolved]
